FAERS Safety Report 9710846 (Version 2)
Quarter: 2013Q4

REPORT INFORMATION
  Report Type: Spontaneous
  Country: US (occurrence: US)
  Receive Date: 20131126
  Receipt Date: 20131126
  Transmission Date: 20140711
  Serious: No
  Sender: FDA-Public Use
  Company Number: US-BRISTOL-MYERS SQUIBB COMPANY-19022391

PATIENT
  Age: 58 Year
  Sex: Female

DRUGS (2)
  1. BYDUREON [Suspect]
     Dates: start: 201303, end: 201303
  2. BYETTA [Suspect]

REACTIONS (3)
  - Muscle spasms [Recovered/Resolved]
  - Nausea [Recovered/Resolved]
  - Diarrhoea [Recovered/Resolved]
